FAERS Safety Report 5298971-7 (Version None)
Quarter: 2007Q2

REPORT INFORMATION
  Report Type: 
  Country: None (occurrence: None)
  Receive Date: 20070417
  Receipt Date: 20070412
  Transmission Date: 20071010
  Serious: Yes (Death)
  Sender: FDA-Public Use
  Company Number: 2007CG00595

PATIENT
  Age: 87 Year
  Sex: Female

DRUGS (6)
  1. FLODIL [Suspect]
     Route: 048
  2. DIGOXIN [Suspect]
     Route: 048
  3. FUROSEMIDE [Suspect]
     Route: 048
  4. ODRIK [Suspect]
     Route: 048
  5. MONO-TILDIEM LP [Suspect]
     Route: 048
  6. SOLUPRED [Concomitant]

REACTIONS (2)
  - CARDIAC ARREST [None]
  - RESPIRATORY ARREST [None]
